FAERS Safety Report 5425471-3 (Version None)
Quarter: 2007Q3

REPORT INFORMATION
  Report Type: 
  Country: None (occurrence: None)
  Receive Date: 20070824
  Receipt Date: 20070818
  Transmission Date: 20080115
  Serious: Yes (Hospitalization)
  Sender: FDA-Public Use
  Company Number: US-AMGEN-US201990

PATIENT
  Sex: Female

DRUGS (1)
  1. ENBREL [Suspect]
     Indication: RHEUMATOID ARTHRITIS
     Route: 058
     Dates: start: 20060616

REACTIONS (8)
  - CYSTITIS [None]
  - CYSTITIS NONINFECTIVE [None]
  - FALL [None]
  - HEART RATE INCREASED [None]
  - HEART RATE IRREGULAR [None]
  - NIGHT SWEATS [None]
  - RHEUMATOID ARTHRITIS [None]
  - UPPER LIMB FRACTURE [None]
